FAERS Safety Report 6295929-6 (Version None)
Quarter: 2009Q3

REPORT INFORMATION
  Report Type: 
  Country: None (occurrence: None)
  Receive Date: 20090804
  Receipt Date: 20090723
  Transmission Date: 20100115
  Serious: Yes (Hospitalization, Disabling)
  Sender: FDA-Public Use
  Company Number: US-JNJFOC-20090400665

PATIENT
  Sex: Female
  Weight: 55.79 kg

DRUGS (3)
  1. REMICADE [Suspect]
     Route: 042
  2. REMICADE [Suspect]
     Indication: RHEUMATOID ARTHRITIS
     Route: 042
  3. MTX [Concomitant]
     Indication: RHEUMATOID ARTHRITIS

REACTIONS (11)
  - CARDIOMEGALY [None]
  - CARDIOMYOPATHY [None]
  - CLOSTRIDIAL INFECTION [None]
  - DEPRESSION [None]
  - DIVERTICULITIS [None]
  - GAIT DISTURBANCE [None]
  - IMPAIRED WORK ABILITY [None]
  - LOSS OF CONSCIOUSNESS [None]
  - MYOCARDIAL INFARCTION [None]
  - PAIN [None]
  - PNEUMONIA [None]
